FAERS Safety Report 14670499 (Version 2)
Quarter: 2018Q1

REPORT INFORMATION
  Report Type: Spontaneous
  Country: IT (occurrence: IT)
  Receive Date: 20180322
  Receipt Date: 20180326
  Transmission Date: 20180509
  Serious: Yes (Hospitalization)
  Sender: FDA-Public Use
  Company Number: IT-TEVA-2018-IT-870185

PATIENT
  Age: 82 Year
  Sex: Male

DRUGS (11)
  1. CARDIOASPIRIN 100 MG GASTRORESISTANT TABLETS [Concomitant]
  2. ABASAGLAR 100 UNITS/ML SOLUTION FOR INJECTION [Concomitant]
     Route: 058
  3. DERMATRANS 5 MG/24 HOURS, TRANSDERMIC PATCH [Concomitant]
  4. ALLOPURINOL. [Concomitant]
     Active Substance: ALLOPURINOL
     Route: 048
  5. BISOPROLOL [Suspect]
     Active Substance: BISOPROLOL
     Indication: MYOCARDIAL ISCHAEMIA
     Route: 048
     Dates: end: 20171016
  6. TORVAST 20 MG CHEWABLE TABLETS [Concomitant]
  7. IRBESARTAN. [Suspect]
     Active Substance: IRBESARTAN
     Indication: HYPERTENSION
     Route: 048
     Dates: end: 20171016
  8. AVODART 0,5 MG CAPSULE SOFT [Concomitant]
     Route: 048
  9. TAMSULOSIN HYDROCHLORIDE. [Concomitant]
     Active Substance: TAMSULOSIN HYDROCHLORIDE
  10. HUMALOG [Concomitant]
     Active Substance: INSULIN LISPRO
     Route: 058
  11. INCRUSE 55 MICROGRAMS INHALATION POWDER, PRE-DISPENSED [Concomitant]

REACTIONS (1)
  - Hyperkalaemia [Recovered/Resolved]

NARRATIVE: CASE EVENT DATE: 20171016
